FAERS Safety Report 8361719-3 (Version None)
Quarter: 2012Q2

REPORT INFORMATION
  Report Type: 
  Country: None (occurrence: None)
  Receive Date: 20120515
  Receipt Date: 20120504
  Transmission Date: 20120825
  Serious: Yes (Hospitalization)
  Sender: FDA-Public Use
  Company Number: US-BAXTER-2010BH008156

PATIENT
  Sex: Male
  Weight: 83 kg

DRUGS (7)
  1. GAMMAGARD LIQUID [Suspect]
     Route: 042
     Dates: start: 20100312, end: 20120312
  2. GAMMAGARD LIQUID [Suspect]
     Route: 042
     Dates: start: 20091106, end: 20100226
  3. TYLENOL (CAPLET) [Concomitant]
     Indication: MIGRAINE
  4. GAMMAGARD LIQUID [Suspect]
     Route: 042
     Dates: start: 20100226, end: 20100226
  5. BENICAR [Concomitant]
     Route: 048
  6. EXELON [Concomitant]
     Route: 062
     Dates: start: 20090501
  7. TEMAZEPAM [Concomitant]
     Route: 048
     Dates: start: 20070101

REACTIONS (1)
  - PULMONARY EMBOLISM [None]
